FAERS Safety Report 11214548 (Version 1)
Quarter: 2015Q2

REPORT INFORMATION
  Report Type: Spontaneous
  Country: US (occurrence: US)
  Receive Date: 20150624
  Receipt Date: 20150624
  Transmission Date: 20150821
  Serious: No
  Sender: FDA-Public Use
  Company Number: US-ASTRAZENECA-2015SE59080

PATIENT
  Sex: Female
  Weight: 68 kg

DRUGS (5)
  1. COQ10 VITAMIN [Concomitant]
     Indication: ADJUVANT THERAPY
  2. ATENOLOL. [Suspect]
     Active Substance: ATENOLOL
     Indication: BLOOD PRESSURE ABNORMAL
     Route: 048
     Dates: start: 2000
  3. ASPIRIN. [Concomitant]
     Active Substance: ASPIRIN
  4. CRESTOR [Suspect]
     Active Substance: ROSUVASTATIN CALCIUM
     Indication: BLOOD CHOLESTEROL INCREASED
     Route: 048
     Dates: start: 2010
  5. HYDROCHLOROTHIAZIDE. [Concomitant]
     Active Substance: HYDROCHLOROTHIAZIDE
     Indication: BLOOD PRESSURE ABNORMAL

REACTIONS (2)
  - Blood cholesterol increased [Unknown]
  - Drug dose omission [Not Recovered/Not Resolved]
